FAERS Safety Report 5390883-3 (Version None)
Quarter: 2007Q3

REPORT INFORMATION
  Report Type: 
  Country: None (occurrence: None)
  Receive Date: 20070716
  Receipt Date: 20070709
  Transmission Date: 20080115
  Serious: Yes (Other)
  Sender: FDA-Public Use
  Company Number: 2007EN000061

PATIENT
  Age: 24 Year
  Sex: Male

DRUGS (2)
  1. ABELCET [Suspect]
     Indication: MENINGITIS CRYPTOCOCCAL
     Dosage: 475 MG;X1;IV
     Route: 042
     Dates: start: 20070630, end: 20070630
  2. ABELCET [Suspect]

REACTIONS (5)
  - HYPERTENSION [None]
  - PHARMACEUTICAL PRODUCT COMPLAINT [None]
  - TACHYCARDIA [None]
  - TACHYPNOEA [None]
  - THERAPEUTIC PRODUCT CONTAMINATION [None]
